FAERS Safety Report 24208148 (Version 1)
Quarter: 2024Q3

REPORT INFORMATION
  Report Type: Spontaneous
  Country: FR (occurrence: FR)
  Receive Date: 20240814
  Receipt Date: 20240814
  Transmission Date: 20241017
  Serious: Yes (Other)
  Sender: AUROBINDO
  Company Number: FR-AFSSAPS-DJ2024000874

PATIENT
  Age: 68 Year
  Sex: Female

DRUGS (4)
  1. CARBOPLATIN [Suspect]
     Active Substance: CARBOPLATIN
     Indication: Squamous cell carcinoma of lung
     Dosage: 340 MILLIGRAM, CYCLICAL (340 MG PER CYCLE)
     Route: 042
     Dates: start: 20240627, end: 20240627
  2. PACLITAXEL [Suspect]
     Active Substance: PACLITAXEL
     Indication: Squamous cell carcinoma of lung
     Dosage: 258 MILLIGRAM, CYCLICAL (258 MG PER CYCLE)
     Route: 042
     Dates: start: 20240627, end: 20240627
  3. OPDIVO [Suspect]
     Active Substance: NIVOLUMAB
     Indication: Squamous cell carcinoma of lung
     Dosage: 360 MILLIGRAM, CYCLICAL (360 MG PER CYCLE)
     Route: 042
     Dates: start: 20240627, end: 20240627
  4. PEGFILGRASTIM [Suspect]
     Active Substance: PEGFILGRASTIM
     Indication: Bone marrow failure
     Dosage: UNK
     Route: 042
     Dates: start: 20240629, end: 20240629

REACTIONS (1)
  - Toxic skin eruption [Unknown]

NARRATIVE: CASE EVENT DATE: 20240630
